FAERS Safety Report 4464786-2 (Version None)
Quarter: 2004Q4

REPORT INFORMATION
  Report Type: 
  Country: None (occurrence: None)
  Receive Date: 20041004
  Receipt Date: 20040831
  Transmission Date: 20050328
  Serious: No
  Sender: FDA-Public Use
  Company Number: MCN380079

PATIENT
  Sex: Female

DRUGS (11)
  1. COREG [Suspect]
     Dosage: 3.125MG TWICE PER DAY
     Route: 048
  2. LASIX [Concomitant]
  3. POTASSIUM [Concomitant]
  4. SPIRONOLACTONE [Concomitant]
  5. LISINOPRIL [Concomitant]
  6. ALLEGRA [Concomitant]
  7. HYDROCHLOROTHIAZIDE [Concomitant]
  8. ALBUTEROL [Concomitant]
  9. PAXIL [Concomitant]
  10. PREVACID [Concomitant]
  11. ASPIRIN [Concomitant]

REACTIONS (1)
  - DIARRHOEA [None]
